FAERS Safety Report 16328335 (Version 2)
Quarter: 2019Q2

REPORT INFORMATION
  Report Type: Spontaneous
  Country: IE (occurrence: IE)
  Receive Date: 20190518
  Receipt Date: 20190530
  Transmission Date: 20190711
  Serious: Yes (Hospitalization)
  Sender: FDA-Public Use
  Company Number: IE-AXELLIA-002457

PATIENT
  Age: 60 Year
  Sex: Male

DRUGS (2)
  1. DAPTOMYCIN. [Suspect]
     Active Substance: DAPTOMYCIN
     Indication: INFECTION
     Route: 042
     Dates: start: 20190405, end: 20190417
  2. ROSUVASTATIN/ROSUVASTATIN CALCIUM [Concomitant]
     Dates: start: 20190412, end: 20190416

REACTIONS (2)
  - Rhabdomyolysis [Recovered/Resolved]
  - Product prescribing error [Unknown]

NARRATIVE: CASE EVENT DATE: 20190416
